FAERS Safety Report 20758155 (Version 2)
Quarter: 2022Q3

REPORT INFORMATION
  Report Type: Spontaneous
  Country: US (occurrence: US)
  Receive Date: 20220427
  Receipt Date: 20220714
  Transmission Date: 20221026
  Serious: No
  Sender: FDA-Public Use
  Company Number: US-PFIZER INC-202101073545

PATIENT
  Age: 76 Year
  Sex: Female
  Weight: 79.38 kg

DRUGS (3)
  1. TOVIAZ [Suspect]
     Active Substance: FESOTERODINE FUMARATE
     Indication: Micturition disorder
     Dosage: 8 MG, 1X/DAY
     Route: 048
     Dates: start: 2021
  2. TOVIAZ [Suspect]
     Active Substance: FESOTERODINE FUMARATE
     Indication: Incontinence
     Dosage: 8 MG ONE EVERY DAY
     Route: 048
     Dates: start: 202112
  3. TOVIAZ [Suspect]
     Active Substance: FESOTERODINE FUMARATE
     Dosage: 4 MG (BREAKING IT IN HALF)

REACTIONS (6)
  - Memory impairment [Unknown]
  - Visual impairment [Unknown]
  - Dysphonia [Unknown]
  - COVID-19 [Unknown]
  - Expired product administered [Unknown]
  - Wrong technique in product usage process [Unknown]
